FAERS Safety Report 25399901 (Version 1)
Quarter: 2025Q2

REPORT INFORMATION
  Report Type: Spontaneous
  Country: NL (occurrence: NL)
  Receive Date: 20250605
  Receipt Date: 20250605
  Transmission Date: 20250717
  Serious: Yes (Life-Threatening, Hospitalization, Other)
  Sender: BOEHRINGER INGELHEIM
  Company Number: None

PATIENT
  Age: 70 Year
  Sex: Female
  Weight: 62 kg

DRUGS (1)
  1. JARDIANCE [Suspect]
     Active Substance: EMPAGLIFLOZIN
     Indication: Diabetes mellitus
     Dosage: 1X PER DAG 1 STUK?1X PER DAY 1 PIECE
     Dates: start: 20250311, end: 20250413

REACTIONS (4)
  - Vomiting [Recovered/Resolved]
  - Acidosis [Recovered/Resolved]
  - Nausea [Recovered/Resolved]
  - Pneumonia [Recovered/Resolved]
